FAERS Safety Report 9419678 (Version 1)
Quarter: 2013Q3

REPORT INFORMATION
  Report Type: Spontaneous
  Country: PT (occurrence: PT)
  Receive Date: 20130725
  Receipt Date: 20130725
  Transmission Date: 20140515
  Serious: Yes (Other)
  Sender: FDA-Public Use
  Company Number: PHHY2013PT078946

PATIENT
  Sex: Female

DRUGS (1)
  1. GLIVEC [Suspect]
     Indication: OFF LABEL USE
     Dosage: UNK UKN, UNK

REACTIONS (2)
  - Diplegia [Unknown]
  - Paraesthesia [Unknown]
